FAERS Safety Report 6074776-4 (Version None)
Quarter: 2009Q1

REPORT INFORMATION
  Report Type: 
  Country: None (occurrence: None)
  Receive Date: 20090212
  Receipt Date: 20090209
  Transmission Date: 20090719
  Serious: Yes (Other)
  Sender: FDA-Public Use
  Company Number: US-ASTRAZENECA-2009UW03622

PATIENT
  Age: 55 Year
  Sex: Female
  Weight: 136.1 kg

DRUGS (3)
  1. SEROQUEL [Suspect]
     Route: 048
  2. NAPROXEN [Concomitant]
  3. LIDODERM [Concomitant]

REACTIONS (4)
  - AMYOTROPHIC LATERAL SCLEROSIS [None]
  - MOOD SWINGS [None]
  - OEDEMA PERIPHERAL [None]
  - SOMNOLENCE [None]
